FAERS Safety Report 5330138-6 (Version None)
Quarter: 2007Q2

REPORT INFORMATION
  Report Type: 
  Country: None (occurrence: None)
  Receive Date: 20070514
  Receipt Date: 20070501
  Transmission Date: 20071010
  Serious: Yes (Other)
  Sender: FDA-Public Use
  Company Number: B0470075A

PATIENT
  Age: 48 Year
  Sex: Female

DRUGS (2)
  1. PAXIL [Suspect]
     Indication: MAJOR DEPRESSION
  2. BUPROPION HYDROCHLORIDE [Concomitant]

REACTIONS (3)
  - CONJUNCTIVAL DISORDER [None]
  - LEUKOCYTOCLASTIC VASCULITIS [None]
  - SKIN HYPERPIGMENTATION [None]
